FAERS Safety Report 6999156-6 (Version None)
Quarter: 2010Q3

REPORT INFORMATION
  Report Type: 
  Country: None (occurrence: None)
  Receive Date: 20100920
  Receipt Date: 20100226
  Transmission Date: 20110219
  Serious: No
  Sender: FDA-Public Use
  Company Number: US-ASTRAZENECA-2010SE08591

PATIENT
  Age: 21 Year
  Sex: Female

DRUGS (2)
  1. SEROQUEL [Suspect]
     Indication: ASPERGER'S DISORDER
     Route: 048
     Dates: end: 20090801
  2. ABILIFY [Concomitant]
     Indication: ASPERGER'S DISORDER

REACTIONS (2)
  - DYSTONIA [None]
  - JOINT STIFFNESS [None]
